FAERS Safety Report 10308535 (Version 1)
Quarter: 2014Q3

REPORT INFORMATION
  Report Type: Spontaneous
  Country: US (occurrence: US)
  Receive Date: 20140716
  Receipt Date: 20140716
  Transmission Date: 20150326
  Serious: No
  Sender: FDA-Public Use
  Company Number: US-MYLANLABS-2014S1001546

PATIENT
  Sex: Male

DRUGS (4)
  1. THIOTHIXENE CAPSULES, USP [Suspect]
     Active Substance: THIOTHIXENE
     Indication: OFF LABEL USE
     Route: 048
     Dates: start: 201401
  2. THIOTHIXENE CAPSULES, USP [Suspect]
     Active Substance: THIOTHIXENE
     Indication: OFF LABEL USE
     Route: 048
     Dates: end: 201401
  3. THIOTHIXENE CAPSULES, USP [Suspect]
     Active Substance: THIOTHIXENE
     Indication: BIPOLAR DISORDER
     Route: 048
     Dates: start: 201401
  4. THIOTHIXENE CAPSULES, USP [Suspect]
     Active Substance: THIOTHIXENE
     Indication: BIPOLAR DISORDER
     Route: 048
     Dates: end: 201401

REACTIONS (2)
  - Intentional product misuse [Not Recovered/Not Resolved]
  - Agitation [Not Recovered/Not Resolved]

NARRATIVE: CASE EVENT DATE: 201401
